FAERS Safety Report 11857700 (Version 1)
Quarter: 2015Q4

REPORT INFORMATION
  Report Type: Spontaneous
  Country: US (occurrence: None)
  Receive Date: 20151221
  Receipt Date: 20151221
  Transmission Date: 20160305
  Serious: Yes (Other)
  Sender: FDA-Public Use
  Company Number: None

PATIENT
  Age: 66 Year
  Sex: Female
  Weight: 54.89 kg

DRUGS (6)
  1. VITAMIN D [Concomitant]
     Active Substance: CHOLECALCIFEROL
  2. COLCRYS [Suspect]
     Active Substance: COLCHICINE
     Indication: GOUT
     Dosage: 1PILL TWICE A DAY FOR 3 DAYS TWICE DAILY TAKEN BY MOUTH
     Route: 048
  3. VITAMIN B12 [Concomitant]
     Active Substance: CYANOCOBALAMIN
  4. SERALITE [Concomitant]
  5. ESTROVEN [Concomitant]
     Active Substance: DIETARY SUPPLEMENT
  6. IBUPROPHEN [Concomitant]
     Active Substance: IBUPROFEN

REACTIONS (3)
  - Abdominal distension [None]
  - Muscle spasms [None]
  - Abdominal pain [None]

NARRATIVE: CASE EVENT DATE: 20151218
